FAERS Safety Report 5736245-8 (Version None)
Quarter: 2008Q2

REPORT INFORMATION
  Report Type: 
  Country: None (occurrence: None)
  Receive Date: 20080513
  Receipt Date: 20080509
  Transmission Date: 20081010
  Serious: Yes (Other)
  Sender: FDA-Public Use
  Company Number: ES-MERCK-0805ESP00015

PATIENT
  Age: 68 Year
  Sex: Male

DRUGS (1)
  1. CANCIDAS [Suspect]
     Indication: CANDIDA SEPSIS
     Route: 042
     Dates: start: 20080124, end: 20080128

REACTIONS (1)
  - PANCYTOPENIA [None]
